FAERS Safety Report 8602035 (Version 2)
Quarter: 2013Q4

REPORT INFORMATION
  Report Type: Spontaneous
  Country: US (occurrence: US)
  Receive Date: 20120607
  Receipt Date: 20131129
  Transmission Date: 20140711
  Serious: Yes (Other)
  Sender: FDA-Public Use
  Company Number: US-ASTRAZENECA-2012SE36171

PATIENT
  Sex: Male
  Weight: 63.5 kg

DRUGS (10)
  1. NEXIUM [Suspect]
     Indication: OESOPHAGITIS
     Route: 048
     Dates: start: 20030311, end: 20030421
  2. NEXIUM [Suspect]
     Indication: OESOPHAGITIS
     Route: 048
     Dates: start: 2004, end: 2008
  3. ZOLOFT [Concomitant]
     Dates: start: 20030306
  4. HYDROCODONE/APAP [Concomitant]
     Dosage: 10/650 TAKE TWO TABLETS BY MOUTH THREE TIMES DAILY
     Dates: start: 20030306
  5. AMBIEN [Concomitant]
     Dosage: 10 MG TAKE ONE TABLET BY MOUTH AT BEDTIME AS NEEDED
     Dates: start: 20030308
  6. LEVOXYL [Concomitant]
     Route: 048
     Dates: start: 20030313
  7. NEURONTIN [Concomitant]
     Route: 048
     Dates: start: 20030317
  8. PROPOXY/APAP [Concomitant]
     Dosage: 100/650 MG
     Route: 048
     Dates: start: 20030318
  9. TUMS [Concomitant]
     Dosage: EVERYDAY
  10. RANITIDINE [Concomitant]

REACTIONS (5)
  - Throat cancer [Unknown]
  - Osteoporosis [Unknown]
  - Foot fracture [Unknown]
  - Glaucoma [Unknown]
  - Depression [Unknown]
